FAERS Safety Report 20616780 (Version 2)
Quarter: 2022Q2

REPORT INFORMATION
  Report Type: Spontaneous
  Country: US (occurrence: US)
  Receive Date: 20220321
  Receipt Date: 20220413
  Transmission Date: 20220721
  Serious: Yes (Other)
  Sender: FDA-Public Use
  Company Number: US-LUPIN PHARMACEUTICALS INC.-2022-03815

PATIENT
  Age: 19 Year
  Sex: Female

DRUGS (53)
  1. DOXYCYCLINE [Suspect]
     Active Substance: DOXYCYCLINE
     Indication: Bartonellosis
     Dosage: 100 MG, BID
     Route: 065
  2. DOXYCYCLINE [Suspect]
     Active Substance: DOXYCYCLINE
     Indication: Borrelia infection
  3. AZITHROMYCIN [Suspect]
     Active Substance: AZITHROMYCIN
     Indication: Bartonellosis
     Dosage: 500 MG, QD
     Route: 065
  4. AZITHROMYCIN [Suspect]
     Active Substance: AZITHROMYCIN
     Indication: Borrelia infection
  5. FAMOTIDINE [Suspect]
     Active Substance: FAMOTIDINE
     Indication: Mast cell activation syndrome
     Dosage: UNK
     Route: 065
  6. BUPROPION [Suspect]
     Active Substance: BUPROPION
     Indication: Product used for unknown indication
     Dosage: UNK
     Route: 065
  7. CELECOXIB [Suspect]
     Active Substance: CELECOXIB
     Indication: Mast cell activation syndrome
     Dosage: 100 MG, QD
     Route: 065
  8. CELECOXIB [Suspect]
     Active Substance: CELECOXIB
     Dosage: 100 MG, BID
     Route: 065
  9. RIFAMPIN [Suspect]
     Active Substance: RIFAMPIN
     Indication: Cat scratch disease
     Dosage: UNK
     Route: 048
  10. RIFAMPIN [Suspect]
     Active Substance: RIFAMPIN
     Indication: Babesiosis
  11. HYDROXYCHLOROQUINE [Suspect]
     Active Substance: HYDROXYCHLOROQUINE
     Indication: Cat scratch disease
     Dosage: UNK
     Route: 048
  12. HYDROXYCHLOROQUINE [Suspect]
     Active Substance: HYDROXYCHLOROQUINE
     Indication: Babesiosis
  13. SULFAMETHOXAZOLE AND TRIMETHOPRIM [Suspect]
     Active Substance: SULFAMETHOXAZOLE\TRIMETHOPRIM
     Indication: Cat scratch disease
     Dosage: UNK
     Route: 048
  14. SULFAMETHOXAZOLE AND TRIMETHOPRIM [Suspect]
     Active Substance: SULFAMETHOXAZOLE\TRIMETHOPRIM
     Indication: Babesiosis
  15. IMATINIB MESYLATE [Suspect]
     Active Substance: IMATINIB MESYLATE
     Indication: Mast cell activation syndrome
     Dosage: 100 MG, DAILY, LOW DOSE
     Route: 065
  16. LURASIDONE [Suspect]
     Active Substance: LURASIDONE
     Indication: Obsessive-compulsive disorder
     Dosage: UNK
     Route: 065
  17. PROPRANOLOL [Suspect]
     Active Substance: PROPRANOLOL HYDROCHLORIDE
     Indication: Postural orthostatic tachycardia syndrome
     Dosage: UNK
     Route: 065
  18. LAMOTRIGINE [Suspect]
     Active Substance: LAMOTRIGINE
     Indication: Obsessive-compulsive disorder
     Dosage: UNK
     Route: 065
  19. CETIRIZINE [Suspect]
     Active Substance: CETIRIZINE HYDROCHLORIDE
     Indication: Mast cell activation syndrome
     Dosage: UNK
     Route: 065
  20. CEFUROXIME [Suspect]
     Active Substance: CEFUROXIME
     Indication: Bartonellosis
     Dosage: 500 MG, BID
     Route: 065
  21. CEFUROXIME [Suspect]
     Active Substance: CEFUROXIME
     Indication: Borrelia infection
  22. MINOCYCLINE [Suspect]
     Active Substance: MINOCYCLINE HYDROCHLORIDE
     Indication: Cat scratch disease
     Dosage: UNK
     Route: 048
  23. MINOCYCLINE [Suspect]
     Active Substance: MINOCYCLINE HYDROCHLORIDE
     Indication: Babesiosis
  24. CLARITHROMYCIN [Suspect]
     Active Substance: CLARITHROMYCIN
     Indication: Cat scratch disease
     Dosage: UNK
     Route: 048
  25. CLARITHROMYCIN [Suspect]
     Active Substance: CLARITHROMYCIN
     Indication: Babesiosis
  26. VILAZODONE [Suspect]
     Active Substance: VILAZODONE
     Indication: Obsessive-compulsive disorder
     Dosage: UNK
     Route: 065
  27. LORATADINE [Suspect]
     Active Substance: LORATADINE
     Indication: Mast cell activation syndrome
     Dosage: UNK
     Route: 065
  28. DIPHENHYDRAMINE [Suspect]
     Active Substance: DIPHENHYDRAMINE
     Indication: Mast cell activation syndrome
     Dosage: UNK
     Route: 065
  29. FEXOFENADINE [Suspect]
     Active Substance: FEXOFENADINE HYDROCHLORIDE
     Indication: Mast cell activation syndrome
     Dosage: UNK
     Route: 065
  30. RANITIDINE [Suspect]
     Active Substance: RANITIDINE
     Indication: Mast cell activation syndrome
     Dosage: UNK
     Route: 065
  31. LEVOCETIRIZINE [Suspect]
     Active Substance: LEVOCETIRIZINE
     Indication: Mast cell activation syndrome
     Dosage: UNK
     Route: 065
  32. MONTELUKAST [Concomitant]
     Active Substance: MONTELUKAST SODIUM
     Indication: Mast cell activation syndrome
     Dosage: UNK
     Route: 065
  33. HYDROXYZINE [Concomitant]
     Active Substance: HYDROXYZINE HYDROCHLORIDE
     Indication: Mast cell activation syndrome
     Dosage: UNK
     Route: 065
  34. CROMOLYN [Concomitant]
     Active Substance: CROMOLYN
     Indication: Mast cell activation syndrome
     Dosage: UNK
     Route: 048
  35. KETOTIFEN [Concomitant]
     Active Substance: KETOTIFEN
     Indication: Mast cell activation syndrome
     Dosage: 2 MG, QD
     Route: 065
  36. KETOTIFEN [Concomitant]
     Active Substance: KETOTIFEN
     Dosage: 1.5 MG
     Route: 065
  37. NALTREXONE [Concomitant]
     Active Substance: NALTREXONE
     Indication: Mast cell activation syndrome
     Dosage: 3 MG, ONCE DAILY, LOW DOSE
     Route: 065
  38. GLEEVEC [Concomitant]
     Active Substance: IMATINIB MESYLATE
     Indication: Mast cell activation syndrome
     Dosage: LOW-DOSE
     Route: 065
  39. NORTRIPTYLINE [Concomitant]
     Active Substance: NORTRIPTYLINE
     Indication: Constipation
     Dosage: 30 MG, QD
     Route: 065
  40. COFFEA [Concomitant]
     Indication: Constipation
     Dosage: ENEMAS
     Route: 054
  41. HUMAN IMMUNOGLOBULIN G [Concomitant]
     Active Substance: HUMAN IMMUNOGLOBULIN G
     Indication: Chronic inflammatory demyelinating polyradiculoneuropathy
     Dosage: 2 G/KG OVER TWO DAYS PER MONTH
     Route: 042
  42. PROGESTERONE [Concomitant]
     Active Substance: PROGESTERONE
     Indication: Mast cell activation syndrome
     Dosage: 100 MG, QD
     Route: 048
  43. PROGESTERONE [Concomitant]
     Active Substance: PROGESTERONE
     Dosage: 200 MG, QD
     Route: 048
  44. PRUCALOPRIDE [Concomitant]
     Active Substance: PRUCALOPRIDE
     Indication: Constipation
     Dosage: UNK
     Route: 065
  45. PRUCALOPRIDE [Concomitant]
     Active Substance: PRUCALOPRIDE
     Indication: Mast cell activation syndrome
  46. CEFTRIAXONE [Concomitant]
     Active Substance: CEFTRIAXONE
     Indication: Lyme disease
     Dosage: UNK
     Route: 042
  47. CEFTRIAXONE [Concomitant]
     Active Substance: CEFTRIAXONE
     Indication: Bartonellosis
     Dosage: 2 GRAM, QD
     Route: 042
  48. CEFTRIAXONE [Concomitant]
     Active Substance: CEFTRIAXONE
     Indication: Borrelia infection
  49. ATOVAQUONE [Concomitant]
     Active Substance: ATOVAQUONE
     Indication: Bartonellosis
     Dosage: 250 MG, BID
     Route: 048
  50. ATOVAQUONE [Concomitant]
     Active Substance: ATOVAQUONE
     Indication: Borrelia infection
  51. PROGUANIL [Suspect]
     Active Substance: PROGUANIL
     Indication: Bartonellosis
     Dosage: 100 MG, BID
     Route: 048
  52. PROGUANIL [Suspect]
     Active Substance: PROGUANIL
     Indication: Borrelia infection
  53. CROMOLYN [Concomitant]
     Active Substance: CROMOLYN
     Indication: Mast cell activation syndrome

REACTIONS (6)
  - Cerebral disorder [Unknown]
  - Condition aggravated [Unknown]
  - Drug intolerance [Unknown]
  - Mast cell activation syndrome [Unknown]
  - Drug ineffective for unapproved indication [Unknown]
  - Off label use [Unknown]
